FAERS Safety Report 9619547 (Version 2)
Quarter: 2013Q4

REPORT INFORMATION
  Report Type: Spontaneous
  Country: BE (occurrence: BE)
  Receive Date: 20131014
  Receipt Date: 20131014
  Transmission Date: 20140711
  Serious: Yes (Other)
  Sender: FDA-Public Use
  Company Number: BE-SA-FABR-1003465

PATIENT
  Age: 68 Year
  Sex: Female
  Weight: 43 kg

DRUGS (6)
  1. FABRAZYME [Suspect]
     Indication: FABRY^S DISEASE
     Dosage: 1 MG/KG, UNK
     Route: 042
     Dates: start: 20130107
  2. L-THYROXINE [Concomitant]
  3. CORDARONE [Concomitant]
  4. ASAFLOW [Concomitant]
  5. LISINOPRIL [Concomitant]
  6. OMEPRAZOLE [Concomitant]

REACTIONS (2)
  - Transient ischaemic attack [Recovered/Resolved]
  - Hemiparesis [Recovered/Resolved]
